FAERS Safety Report 21547591 (Version 1)
Quarter: 2022Q4

REPORT INFORMATION
  Report Type: Spontaneous
  Country: US (occurrence: None)
  Receive Date: 20221102
  Receipt Date: 20221102
  Transmission Date: 20230113
  Serious: Yes (Hospitalization)
  Sender: FDA-Public Use
  Company Number: None

PATIENT
  Age: 8 Year
  Sex: Female

DRUGS (13)
  1. LUPRON DEPOT-PED [Suspect]
     Active Substance: LEUPROLIDE ACETATE
     Indication: Hyperpituitarism
     Dosage: OTHER FREQUENCY : EVERY 3 MONTHS;?
     Route: 030
     Dates: start: 20220823
  2. AZITHROMYCIN SUS [Concomitant]
  3. CETIRIZINE SOL [Concomitant]
  4. CLOTRIMAZOLE CRE [Concomitant]
  5. CONSTULOSE SOL [Concomitant]
  6. FLUTICASONE SPR [Concomitant]
  7. IPRATROPIUM ALBUTER [Concomitant]
  8. LUPR DEP-PED [Concomitant]
  9. NEXIUM [Concomitant]
     Active Substance: ESOMEPRAZOLE MAGNESIUM
  10. ONDANSETRON SOL [Concomitant]
  11. OXYBUYNIN SYP [Concomitant]
  12. POLYETH GLYC POW [Concomitant]
  13. PREDNISONE SOL [Concomitant]

REACTIONS (1)
  - Urinary tract infection [None]

NARRATIVE: CASE EVENT DATE: 20221031
